FAERS Safety Report 8531501-2 (Version None)
Quarter: 2012Q3

REPORT INFORMATION
  Report Type: 
  Country: None (occurrence: None)
  Receive Date: 20120710
  Receipt Date: 20120625
  Transmission Date: 20120928
  Serious: Yes (Hospitalization, Other)
  Sender: FDA-Public Use
  Company Number: DSU-2012-05070

PATIENT
  Age: 71 Year
  Sex: Male

DRUGS (3)
  1. BENICAR [Suspect]
     Indication: HYPERTENSION
     Dosage: 20 MG (QD), PER ORAL
     Route: 048
     Dates: start: 20120101, end: 20120501
  2. KALBITOR (ENCALLANTIDE) [Concomitant]
  3. CINRYZE [Suspect]
     Indication: HEREDITARY ANGIOEDEMA
     Dosage: (1000 IU ONCE EVERY 5 DAYS), INTRAVENOUS (NOT OTHERWISE SPECIFIED)
     Route: 042
     Dates: start: 20110401

REACTIONS (4)
  - HEREDITARY ANGIOEDEMA [None]
  - GASTROENTERITIS [None]
  - HYPOTENSION [None]
  - CONDITION AGGRAVATED [None]
